FAERS Safety Report 16828505 (Version 4)
Quarter: 2020Q4

REPORT INFORMATION
  Report Type: Spontaneous
  Country: US (occurrence: US)
  Receive Date: 20190919
  Receipt Date: 20201216
  Transmission Date: 20210113
  Serious: No
  Sender: FDA-Public Use
  Company Number: US-SA-2019SA258344

PATIENT

DRUGS (3)
  1. MAGNESIUM [Concomitant]
     Active Substance: MAGNESIUM
  2. DUPIXENT [Suspect]
     Active Substance: DUPILUMAB
     Indication: DERMATITIS ATOPIC
     Dosage: 300 MG, QOW
     Route: 058
     Dates: start: 20190430
  3. DUPIXENT [Suspect]
     Active Substance: DUPILUMAB
     Indication: PSORIASIS

REACTIONS (7)
  - Alopecia [Unknown]
  - Product use in unapproved indication [Unknown]
  - Skin mass [Unknown]
  - Weight increased [Unknown]
  - Upper respiratory tract infection [Unknown]
  - Skin discolouration [Unknown]
  - Blepharitis [Unknown]

NARRATIVE: CASE EVENT DATE: 20190430
